FAERS Safety Report 16756439 (Version 2)
Quarter: 2019Q3

REPORT INFORMATION
  Report Type: Spontaneous
  Country: PL (occurrence: PL)
  Receive Date: 20190829
  Receipt Date: 20190918
  Transmission Date: 20191005
  Serious: Yes (Other)
  Sender: FDA-Public Use
  Company Number: PHHY2019PL197517

PATIENT
  Age: 29 Year
  Sex: Male

DRUGS (1)
  1. MIDOSTAURIN [Suspect]
     Active Substance: MIDOSTAURIN
     Indication: ACUTE MYELOID LEUKAEMIA
     Dosage: 50 MG, BID (14 DAYS (DAYS: 8-21))
     Route: 048
     Dates: start: 201904

REACTIONS (3)
  - Bone marrow failure [Unknown]
  - Pneumonia fungal [Unknown]
  - Bone marrow reticulin fibrosis [Unknown]

NARRATIVE: CASE EVENT DATE: 201904
